FAERS Safety Report 9007357 (Version 1)
Quarter: 2013Q1

REPORT INFORMATION
  Report Type: Spontaneous
  Country: US (occurrence: US)
  Receive Date: 20130110
  Receipt Date: 20130110
  Transmission Date: 20140127
  Serious: Yes (Disabling, Other)
  Sender: FDA-Public Use
  Company Number: US-009507513-1301USA002499

PATIENT
  Age: 15 Year
  Sex: Male

DRUGS (3)
  1. SINGULAIR [Suspect]
     Dosage: UNK
     Route: 048
  2. PULMICORT [Suspect]
     Indication: PRODUCT USED FOR UNKNOWN INDICATION
     Dosage: 200 MG, BID
     Route: 048
  3. VENTOLIN (ALBUTEROL SULFATE) [Suspect]

REACTIONS (1)
  - Psychotic disorder [Unknown]
